FAERS Safety Report 25890056 (Version 2)
Quarter: 2025Q4

REPORT INFORMATION
  Report Type: Spontaneous
  Country: US (occurrence: US)
  Receive Date: 20251007
  Receipt Date: 20251014
  Transmission Date: 20260117
  Serious: Yes (Hospitalization, Other)
  Sender: RANBAXY
  Company Number: US-SUN PHARMACEUTICAL INDUSTRIES INC-2025R1-530126

PATIENT
  Age: 15 Year
  Sex: Male

DRUGS (1)
  1. ACETAMINOPHEN [Suspect]
     Active Substance: ACETAMINOPHEN
     Indication: Product used for unknown indication
     Dosage: 650 MILLIGRAM (300 TABLETS)
     Route: 048

REACTIONS (5)
  - Toxicity to various agents [Unknown]
  - Intentional overdose [Unknown]
  - Liver function test decreased [Recovered/Resolved]
  - Transaminases increased [Recovered/Resolved]
  - Mitochondrial toxicity [Recovered/Resolved]
